FAERS Safety Report 7670053-6 (Version None)
Quarter: 2011Q3

REPORT INFORMATION
  Report Type: 
  Country: None (occurrence: None)
  Receive Date: 20110808
  Receipt Date: 20110728
  Transmission Date: 20111222
  Serious: Yes (Hospitalization)
  Sender: FDA-Public Use
  Company Number: US-BAXTER-2011BH024638

PATIENT
  Age: 50 Year
  Sex: Male
  Weight: 98 kg

DRUGS (4)
  1. OFATUMUMAB [Suspect]
     Route: 042
     Dates: start: 20110309, end: 20110309
  2. OFATUMUMAB [Suspect]
     Indication: CHRONIC LYMPHOCYTIC LEUKAEMIA
     Route: 042
     Dates: start: 20110101, end: 20110603
  3. CYCLOPHOSPHAMIDE [Suspect]
     Indication: CHRONIC LYMPHOCYTIC LEUKAEMIA
     Route: 042
     Dates: start: 20110309, end: 20110603
  4. FLUDARABINE PHOSPHATE [Suspect]
     Indication: CHRONIC LYMPHOCYTIC LEUKAEMIA
     Route: 042
     Dates: start: 20110309, end: 20110603

REACTIONS (2)
  - SYNCOPE [None]
  - DEHYDRATION [None]
